FAERS Safety Report 9729862 (Version 1)
Quarter: 2013Q4

REPORT INFORMATION
  Report Type: Spontaneous
  Country: GB (occurrence: None)
  Receive Date: 20131203
  Receipt Date: 20131203
  Transmission Date: 20140711
  Serious: Yes (Life-Threatening)
  Sender: FDA-Public Use
  Company Number: AUR-APL-2013-10002

PATIENT
  Age: 80 Year
  Sex: Female
  Weight: 58.5 kg

DRUGS (6)
  1. ALENDRONIC ACID (ALENDRONIC ACID) [Suspect]
     Indication: OSTEOPOROSIS
     Route: 048
     Dates: start: 20081208, end: 20130215
  2. CO-CODAMOL (PANADEINE CO) [Concomitant]
  3. IBUPROFEN (IBUPROFEN) [Concomitant]
  4. LACTULOSE (LACTULOSE) [Concomitant]
  5. NITROFURANTOIN (NITROFURANTION) [Concomitant]
  6. OMEPRAZOLE (OMEPRAZOLE) [Concomitant]

REACTIONS (1)
  - Oesophageal cancer metastatic [None]
